FAERS Safety Report 11630247 (Version 1)
Quarter: 2015Q4

REPORT INFORMATION
  Report Type: Spontaneous
  Country: DE (occurrence: DE)
  Receive Date: 20151014
  Receipt Date: 20151014
  Transmission Date: 20160304
  Serious: Yes (Hospitalization)
  Sender: FDA-Public Use
  Company Number: DE-JNJFOC-20151006502

PATIENT
  Age: 53 Year
  Sex: Male
  Weight: 60 kg

DRUGS (3)
  1. SIMPONI [Suspect]
     Active Substance: GOLIMUMAB
     Indication: COLITIS ULCERATIVE
     Route: 058
     Dates: start: 20150324, end: 20150418
  2. FERROSANOL [Concomitant]
     Active Substance: FERROUS GLUCONATE
     Indication: BLOOD COUNT
     Route: 065
     Dates: start: 20150830, end: 20150904
  3. METRONIDAZOL [Concomitant]
     Active Substance: METRONIDAZOLE
     Indication: CLOSTRIDIUM DIFFICILE INFECTION
     Route: 065
     Dates: start: 20150902, end: 20150917

REACTIONS (4)
  - Pancreatitis [Recovered/Resolved]
  - Clostridium difficile infection [Recovered/Resolved]
  - Haemoglobin decreased [Unknown]
  - Treatment failure [Unknown]

NARRATIVE: CASE EVENT DATE: 20150830
